FAERS Safety Report 23541842 (Version 3)
Quarter: 2024Q3

REPORT INFORMATION
  Report Type: Spontaneous
  Country: FR (occurrence: FR)
  Receive Date: 20240220
  Receipt Date: 20240913
  Transmission Date: 20241017
  Serious: Yes (Other)
  Sender: TEVA
  Company Number: FR-AstraZeneca-2024A018814

PATIENT
  Age: 67 Year
  Sex: Male
  Weight: 85.5 kg

DRUGS (20)
  1. PREDNISONE [Suspect]
     Active Substance: PREDNISONE
     Indication: Pulmonary fibrosis
     Dosage: UNK
     Route: 065
     Dates: start: 20190807
  2. CORDARONE [Concomitant]
     Active Substance: AMIODARONE HYDROCHLORIDE
     Indication: Pulmonary fibrosis
     Dosage: HAS BEEN STOPPED AND REINITIATED SEVERAL TIMES BETWEEN SEPTEMBER 2009 AND JANUARY 2019
     Route: 065
     Dates: start: 200909
  3. FLECAINIDE [Concomitant]
     Active Substance: FLECAINIDE
     Indication: Arrhythmia
     Dosage: MORNING
     Route: 065
     Dates: start: 200909
  4. RACECADOTRIL [Concomitant]
     Active Substance: RACECADOTRIL
     Indication: Product used for unknown indication
     Dosage: TIME INTERVAL: AS NECESSARY: 1 CAPSULE 3 TIMES A DAY IF NECESSARY
     Route: 065
  5. BISOPROLOL FUMARATE [Concomitant]
     Active Substance: BISOPROLOL FUMARATE
     Indication: Product used for unknown indication
     Dosage: MORNING AND EVENING
     Route: 065
  6. ATACAND [Suspect]
     Active Substance: CANDESARTAN CILEXETIL
     Indication: Product used for unknown indication
     Dosage: UNK
     Route: 065
     Dates: start: 2019
  7. FOLIC ACID [Concomitant]
     Active Substance: FOLIC ACID
     Indication: Product used for unknown indication
     Dosage: MORNING
     Route: 065
  8. POTASSIUM CHLORIDE;TROMETAMOL [Concomitant]
     Indication: Product used for unknown indication
     Dosage: UNK
     Route: 065
  9. PANTOPRAZOLE [Concomitant]
     Active Substance: PANTOPRAZOLE
     Indication: Product used for unknown indication
     Route: 065
  10. TITANOREINE [Concomitant]
     Active Substance: CARRAGEENAN\TITANIUM\ZINC
     Indication: Product used for unknown indication
     Route: 065
  11. FUROSEMIDE [Concomitant]
     Active Substance: FUROSEMIDE
     Indication: Product used for unknown indication
     Dosage: MORNING NOON
     Route: 065
  12. POTASSIUM CHLORIDE [Concomitant]
     Active Substance: POTASSIUM CHLORIDE
     Indication: Product used for unknown indication
     Dosage: 3 TABLETS MORNING, NOON AND EVENING
     Route: 065
  13. Magnesium amino acid chelate;Magnesium glycinate [Concomitant]
     Indication: Product used for unknown indication
     Dosage: UNK
     Route: 065
  14. ELIQUIS [Concomitant]
     Active Substance: APIXABAN
     Indication: Product used for unknown indication
     Dosage: MORNING AND EVENING
     Route: 065
  15. VITAMIN D3 [Concomitant]
     Active Substance: CHOLECALCIFEROL
     Indication: Product used for unknown indication
     Dosage: ONCE A MONTH
     Route: 065
  16. CALCIUM CARBONATE [Concomitant]
     Active Substance: CALCIUM CARBONATE
     Indication: Product used for unknown indication
     Dosage: MORNING AND EVENING
     Route: 065
  17. DOLIPRANE [Concomitant]
     Active Substance: ACETAMINOPHEN
     Indication: Product used for unknown indication
     Dosage: PER DOSE AND 3 G MAX PER 24 HOURS
     Route: 065
  18. APROTININ [Concomitant]
     Active Substance: APROTININ
     Indication: Product used for unknown indication
     Route: 065
  19. Mag [Concomitant]
     Indication: Product used for unknown indication
     Dosage: ON THE MORNING
     Route: 065
  20. INSPRA [Concomitant]
     Active Substance: EPLERENONE
     Indication: Product used for unknown indication
     Dosage: UNK
     Route: 065

REACTIONS (12)
  - Cardiac failure [Unknown]
  - Osteoporosis [Unknown]
  - Haematoma [Unknown]
  - Skin necrosis [Unknown]
  - Cataract [Unknown]
  - Diabetes mellitus [Unknown]
  - Tremor [Unknown]
  - Gastrointestinal disorder [Unknown]
  - Cardiorenal syndrome [Unknown]
  - Muscle atrophy [Unknown]
  - Ascites [Unknown]
  - Alopecia [Unknown]

NARRATIVE: CASE EVENT DATE: 20230301
